FAERS Safety Report 7953418-4 (Version None)
Quarter: 2011Q4

REPORT INFORMATION
  Report Type: 
  Country: None (occurrence: None)
  Receive Date: 20111202
  Receipt Date: 20111121
  Transmission Date: 20120403
  Serious: Yes (Other)
  Sender: FDA-Public Use
  Company Number: US-ELI_LILLY_AND_COMPANY-US201111007415

PATIENT
  Sex: Female

DRUGS (7)
  1. SOTALOL HCL [Concomitant]
  2. EVISTA [Concomitant]
  3. CYMBALTA [Suspect]
     Indication: DEMENTIA
     Dosage: 60 MG, EACH MORNING
     Dates: start: 20050101
  4. ZYPREXA [Suspect]
     Indication: AMNESIA
     Dosage: 5 MG, QD
     Dates: start: 20060101, end: 20110901
  5. NAMENDA [Concomitant]
  6. SEROQUEL [Concomitant]
     Dosage: UNK
     Dates: start: 20110901
  7. PRADAXA [Concomitant]
     Indication: ANTICOAGULANT THERAPY

REACTIONS (8)
  - CARDIAC PACEMAKER INSERTION [None]
  - HEADACHE [None]
  - ABDOMINAL PAIN [None]
  - CONSTIPATION [None]
  - DRUG INTERACTION [None]
  - ABDOMINAL DISTENSION [None]
  - OFF LABEL USE [None]
  - MEMORY IMPAIRMENT [None]
